FAERS Safety Report 4968703-8 (Version None)
Quarter: 2006Q2

REPORT INFORMATION
  Report Type: 
  Country: None (occurrence: None)
  Receive Date: 20060411
  Receipt Date: 20060331
  Transmission Date: 20061013
  Serious: Yes (Other)
  Sender: FDA-Public Use
  Company Number: PHBS2006CH04794

PATIENT
  Age: 51 Year
  Sex: Female

DRUGS (5)
  1. VOLTAREN [Suspect]
     Indication: POSTOPERATIVE CARE
     Dosage: 150 MG/DAY
     Route: 048
     Dates: start: 20051222, end: 20051213
  2. VOLTAREN [Suspect]
     Dosage: 1 AMP/DAY
     Route: 042
     Dates: start: 20051222, end: 20051222
  3. DAFALGAN [Suspect]
     Indication: POSTOPERATIVE CARE
     Route: 042
     Dates: start: 20051222
  4. CO-DAFALGAN [Suspect]
     Indication: POSTOPERATIVE CARE
     Dates: start: 20051222
  5. PETHIDINE [Suspect]
     Indication: POSTOPERATIVE CARE
     Dosage: 100 MG/DAY
     Route: 030
     Dates: start: 20051222, end: 20051222

REACTIONS (1)
  - SUDDEN HEARING LOSS [None]
